FAERS Safety Report 15280754 (Version 1)
Quarter: 2018Q3

REPORT INFORMATION
  Report Type: Spontaneous
  Country: FR (occurrence: FR)
  Receive Date: 20180815
  Receipt Date: 20180815
  Transmission Date: 20181010
  Serious: Yes (Other)
  Sender: FDA-Public Use
  Company Number: PHHY2018FR071193

PATIENT
  Age: 70 Year
  Sex: Female

DRUGS (1)
  1. PANTOPRAZOLE [Suspect]
     Active Substance: PANTOPRAZOLE
     Indication: OESOPHAGITIS
     Dosage: 1 DF, QD
     Route: 048
     Dates: start: 20180616, end: 20180618

REACTIONS (3)
  - Vomiting [Unknown]
  - Vertigo [Unknown]
  - Nausea [Unknown]

NARRATIVE: CASE EVENT DATE: 20180616
